FAERS Safety Report 17798456 (Version 1)
Quarter: 2020Q2

REPORT INFORMATION
  Report Type: Spontaneous
  Country: GB (occurrence: GB)
  Receive Date: 20200518
  Receipt Date: 20200518
  Transmission Date: 20200714
  Serious: Yes (Other)
  Sender: FDA-Public Use
  Company Number: GB-MYLANLABS-2020M1047594

PATIENT
  Age: 64 Year
  Sex: Male

DRUGS (9)
  1. DEXAMETHASONE. [Suspect]
     Active Substance: DEXAMETHASONE
     Indication: PRODUCT USED FOR UNKNOWN INDICATION
     Dosage: 1 ML (3.3 MG IN 1 ML)
     Route: 057
  2. LIDOCAINE. [Suspect]
     Active Substance: LIDOCAINE
     Indication: LOCAL ANAESTHESIA
     Dosage: 3-5 MLS
     Route: 065
  3. HYALURONIDASE [Suspect]
     Active Substance: HYALURONIDASE
     Indication: LOCAL ANAESTHESIA
     Dosage: UNK
     Route: 065
  4. MITOMYCIN. [Suspect]
     Active Substance: MITOMYCIN
     Indication: SCAR
     Dosage: 0.1 % IN 0.1 ML PER STENT INSERTION
     Route: 057
  5. MITOMYCIN. [Suspect]
     Active Substance: MITOMYCIN
     Indication: PROPHYLAXIS
     Dosage: UNK
  6. PREDNISOLONE. [Suspect]
     Active Substance: PREDNISOLONE
     Indication: PRODUCT USED FOR UNKNOWN INDICATION
     Dosage: 4 PERCENT, QD (1 %, QID)
     Route: 065
  7. HEALON GV [Suspect]
     Active Substance: HYALURONATE SODIUM
     Indication: PRODUCT USED FOR UNKNOWN INDICATION
     Dosage: UNK
     Route: 031
  8. CEFUROXIME. [Suspect]
     Active Substance: CEFUROXIME
     Indication: PRODUCT USED FOR UNKNOWN INDICATION
     Dosage: 0.1 ML (3 MG IN 0.3 MLS)
     Route: 031
  9. CHLORAMPHENICOL [Suspect]
     Active Substance: CHLORAMPHENICOL
     Indication: PRODUCT USED FOR UNKNOWN INDICATION
     Dosage: 2 PERCENT, QD (0.5 %, QID)
     Route: 065

REACTIONS (4)
  - Device dislocation [Recovered/Resolved]
  - Intentional product use issue [Recovered/Resolved]
  - Foreign body in eye [Recovered/Resolved]
  - Product use in unapproved indication [Recovered/Resolved]
